FAERS Safety Report 16858983 (Version 2)
Quarter: 2019Q3

REPORT INFORMATION
  Report Type: Report from Study
  Country: US (occurrence: US)
  Receive Date: 20190926
  Receipt Date: 20190926
  Transmission Date: 20191005
  Serious: Yes (Hospitalization)
  Sender: FDA-Public Use
  Company Number: US-EISAI MEDICAL RESEARCH-EC-2019-055960

PATIENT
  Age: 64 Year
  Sex: Male
  Weight: 82 kg

DRUGS (11)
  1. LENVIMA [Suspect]
     Active Substance: LENVATINIB
     Indication: HEPATOCELLULAR CARCINOMA
     Route: 048
     Dates: start: 20190425, end: 20190503
  2. LENVIMA [Suspect]
     Active Substance: LENVATINIB
     Route: 048
     Dates: start: 20190512, end: 2019
  3. LISINOPRIL. [Concomitant]
     Active Substance: LISINOPRIL
  4. OXYCODONE [Suspect]
     Active Substance: OXYCODONE
     Indication: PAIN
     Dosage: UNKNOWN
     Dates: end: 2019
  5. PROPRANOLOL [Concomitant]
     Active Substance: PROPRANOLOL HYDROCHLORIDE
  6. OXYCODONE [Suspect]
     Active Substance: OXYCODONE
     Dosage: POSSIBLE OVERDOSE: PATIENT TOOK 160MG OF OXYCODONE IN A 2 HOUR PERIOD
     Dates: start: 20190722, end: 2019
  7. LENVIMA [Suspect]
     Active Substance: LENVATINIB
     Route: 048
     Dates: start: 20190813, end: 201909
  8. LENVIMA [Suspect]
     Active Substance: LENVATINIB
     Route: 048
     Dates: start: 20190710, end: 201907
  9. LENVIMA [Suspect]
     Active Substance: LENVATINIB
     Route: 048
     Dates: start: 2019, end: 2019
  10. MARINOL [Concomitant]
     Active Substance: DRONABINOL
  11. LENVIMA [Suspect]
     Active Substance: LENVATINIB
     Route: 048
     Dates: start: 20190805, end: 201908

REACTIONS (20)
  - Heart rate increased [Recovered/Resolved]
  - Stomatitis [Not Recovered/Not Resolved]
  - Vomiting [Not Recovered/Not Resolved]
  - Decreased appetite [Unknown]
  - Pyrexia [Recovered/Resolved]
  - Neuropathy peripheral [Not Recovered/Not Resolved]
  - Oral mucosal blistering [Not Recovered/Not Resolved]
  - Portal vein occlusion [Not Recovered/Not Resolved]
  - Abdominal pain upper [Not Recovered/Not Resolved]
  - Headache [Unknown]
  - Hypertension [Recovered/Resolved]
  - Overdose [Recovered/Resolved]
  - Intestinal perforation [Not Recovered/Not Resolved]
  - Nausea [Unknown]
  - Skin wrinkling [Unknown]
  - Diarrhoea [Recovering/Resolving]
  - Peripheral swelling [Recovered/Resolved]
  - Oral candidiasis [Not Recovered/Not Resolved]
  - Myalgia [Unknown]
  - Arthralgia [Unknown]

NARRATIVE: CASE EVENT DATE: 2019
